FAERS Safety Report 9849087 (Version 1)
Quarter: 2013Q4

REPORT INFORMATION
  Report Type: Spontaneous
  Country: US (occurrence: None)
  Receive Date: 20131224
  Receipt Date: 20131224
  Transmission Date: 20140711
  Serious: Yes (Other)
  Sender: FDA-Public Use
  Company Number: PHEH2013US011774

PATIENT
  Age: 62 Year
  Sex: Female

DRUGS (3)
  1. MYFORTIC (MYCOPHENOLIC ACID) TABLET [Suspect]
     Indication: LIVER TRANSPLANT
  2. TACROLIMUS (TACROLIMUS) [Concomitant]
  3. CALCIUM (CALCIUM) [Concomitant]

REACTIONS (2)
  - Liver transplant rejection [None]
  - Drug ineffective [None]
